FAERS Safety Report 8318573-5 (Version None)
Quarter: 2012Q2

REPORT INFORMATION
  Report Type: 
  Country: None (occurrence: None)
  Receive Date: 20120427
  Receipt Date: 20120416
  Transmission Date: 20120825
  Serious: Yes (Hospitalization, Other)
  Sender: FDA-Public Use
  Company Number: JP-ELI_LILLY_AND_COMPANY-JP201204005770

PATIENT
  Sex: Female

DRUGS (9)
  1. ZYPREXA [Suspect]
     Dosage: UNK
     Route: 048
  2. EVISTA [Suspect]
     Route: 048
  3. ZYPREXA [Suspect]
     Dosage: 10 MG, EACH EVENING
     Route: 048
     Dates: start: 20120401
  4. LYRICA [Concomitant]
  5. ALFAROL [Concomitant]
     Dosage: UNK
     Dates: start: 20120401
  6. MUCOSTA [Concomitant]
     Dosage: UNK, PRN
     Route: 048
     Dates: start: 20120401
  7. LOXONIN [Concomitant]
     Indication: PAIN
     Dosage: UNK, PRN
     Route: 048
     Dates: start: 20120401
  8. AMOBAN [Concomitant]
     Dosage: UNK, EACH EVENING
     Dates: start: 20120401
  9. RABEPRAZOLE SODIUM [Concomitant]
     Dosage: UNK
     Dates: start: 20120401

REACTIONS (3)
  - PNEUMOTHORAX [None]
  - NEUROLEPTIC MALIGNANT SYNDROME [None]
  - PYREXIA [None]
